FAERS Safety Report 10275919 (Version 1)
Quarter: 2014Q3

REPORT INFORMATION
  Report Type: Spontaneous
  Country: US (occurrence: None)
  Receive Date: 20140701
  Receipt Date: 20140701
  Transmission Date: 20150326
  Serious: No
  Sender: FDA-Public Use
  Company Number: None

PATIENT
  Age: 73 Year
  Sex: Male

DRUGS (1)
  1. SUTENT [Suspect]
     Active Substance: SUNITINIB MALATE
     Indication: HEPATIC CANCER
     Dosage: 3 CAPS QD PO
     Route: 048
     Dates: start: 20140625

REACTIONS (2)
  - Pyrexia [None]
  - Stomatitis [None]

NARRATIVE: CASE EVENT DATE: 20140625
